FAERS Safety Report 6986587-3 (Version None)
Quarter: 2010Q3

REPORT INFORMATION
  Report Type: 
  Country: None (occurrence: None)
  Receive Date: 20100915
  Receipt Date: 20090721
  Transmission Date: 20110219
  Serious: No
  Sender: FDA-Public Use
  Company Number: US-WYE-H10248909

PATIENT
  Sex: Female
  Weight: 59.93 kg

DRUGS (1)
  1. PRISTIQ [Suspect]
     Indication: ANXIETY
     Dosage: 1/2 OF A 50 MG TABLET, FREQUENCY UNSPECIFIED
     Route: 048
     Dates: start: 20090716

REACTIONS (3)
  - DECREASED APPETITE [None]
  - INSOMNIA [None]
  - NAUSEA [None]
